FAERS Safety Report 6262032-0 (Version None)
Quarter: 2009Q3

REPORT INFORMATION
  Report Type: 
  Country: None (occurrence: None)
  Receive Date: 20090709
  Receipt Date: 20090702
  Transmission Date: 20100115
  Serious: Yes (Other)
  Sender: FDA-Public Use
  Company Number: CA-ASTRAZENECA-2009UW18650

PATIENT
  Age: 87 Year
  Sex: Male

DRUGS (2)
  1. SEROQUEL [Suspect]
     Route: 048
     Dates: start: 20090630
  2. LOPRESSOR [Concomitant]
     Route: 042

REACTIONS (1)
  - HEPATIC ENZYME INCREASED [None]
